FAERS Safety Report 12916792 (Version 1)
Quarter: 2016Q4

REPORT INFORMATION
  Report Type: Spontaneous
  Country: US (occurrence: US)
  Receive Date: 20161107
  Receipt Date: 20161107
  Transmission Date: 20170207
  Serious: No
  Sender: FDA-Public Use
  Company Number: US-JAZZ-2016-US-017521

PATIENT

DRUGS (27)
  1. XYREM [Suspect]
     Active Substance: SODIUM OXYBATE
     Indication: FIBROMYALGIA
     Dosage: 2.25 G, BID
     Route: 048
     Dates: start: 201005, end: 201006
  2. XYREM [Suspect]
     Active Substance: SODIUM OXYBATE
     Dosage: DOSE ADJUSTMENTS
     Route: 048
     Dates: start: 201006, end: 201202
  3. XYREM [Suspect]
     Active Substance: SODIUM OXYBATE
     Dosage: 4.5 G, BID
     Route: 048
     Dates: start: 201202, end: 2016
  4. ZALEPLON. [Concomitant]
     Active Substance: ZALEPLON
  5. ADVAIR HFA [Concomitant]
     Active Substance: FLUTICASONE PROPIONATE\SALMETEROL XINAFOATE
  6. APLENZIN [Concomitant]
     Active Substance: BUPROPION HYDROBROMIDE
  7. XANAX [Concomitant]
     Active Substance: ALPRAZOLAM
  8. HUMALOG [Concomitant]
     Active Substance: INSULIN LISPRO
  9. VICODIN [Concomitant]
     Active Substance: ACETAMINOPHEN\HYDROCODONE BITARTRATE
  10. ZOCOR [Concomitant]
     Active Substance: SIMVASTATIN
  11. ZOVIRAX [Concomitant]
     Active Substance: ACYCLOVIR
  12. LISINOPRIL. [Concomitant]
     Active Substance: LISINOPRIL
  13. CLONAZEPAM. [Concomitant]
     Active Substance: CLONAZEPAM
  14. LEVOXYL [Concomitant]
     Active Substance: LEVOTHYROXINE SODIUM
  15. PROAIR HFA [Concomitant]
     Active Substance: ALBUTEROL SULFATE
  16. VALACYCLOVIR HCL [Concomitant]
     Active Substance: VALACYCLOVIR HYDROCHLORIDE
  17. XYREM [Suspect]
     Active Substance: SODIUM OXYBATE
     Dosage: 5.5 G, BID
     Route: 048
     Dates: start: 2016
  18. LUNESTA [Concomitant]
     Active Substance: ESZOPICLONE
  19. PULMICORT TURBUHALER [Concomitant]
     Active Substance: BUDESONIDE
  20. LEVOTHYROXINE SODIUM. [Concomitant]
     Active Substance: LEVOTHYROXINE SODIUM
  21. LYRICA [Concomitant]
     Active Substance: PREGABALIN
  22. DOXEPIN [Concomitant]
     Active Substance: DOXEPIN
  23. QUILLIVANT XR [Concomitant]
     Active Substance: METHYLPHENIDATE HYDROCHLORIDE
  24. PROVIGIL [Concomitant]
     Active Substance: MODAFINIL
  25. RELPAX [Concomitant]
     Active Substance: ELETRIPTAN HYDROBROMIDE
  26. REMERON [Concomitant]
     Active Substance: MIRTAZAPINE
  27. SEASONIQUE [Concomitant]
     Active Substance: ETHINYL ESTRADIOL\LEVONORGESTREL

REACTIONS (1)
  - Overdose [Unknown]
